FAERS Safety Report 7041599-9 (Version None)
Quarter: 2010Q4

REPORT INFORMATION
  Report Type: 
  Country: None (occurrence: None)
  Receive Date: 20101013
  Receipt Date: 20091112
  Transmission Date: 20110411
  Serious: No
  Sender: FDA-Public Use
  Company Number: US-ASTRAZENECA-2009SE26178

PATIENT
  Age: 62 Year
  Sex: Male
  Weight: 98 kg

DRUGS (3)
  1. SYMBICORT [Suspect]
     Indication: EMPHYSEMA
     Dosage: TOTAL DAILY DOSE 640MCG, BID
     Route: 055
  2. SPIRIVA [Concomitant]
     Indication: EMPHYSEMA
  3. XOPENEX [Concomitant]
     Indication: EMPHYSEMA

REACTIONS (3)
  - COUGH [None]
  - DRUG DOSE OMISSION [None]
  - DRY THROAT [None]
